FAERS Safety Report 26132381 (Version 1)
Quarter: 2025Q4

REPORT INFORMATION
  Report Type: Spontaneous
  Country: EU (occurrence: EU)
  Receive Date: 20251208
  Receipt Date: 20251208
  Transmission Date: 20260118
  Serious: Yes (Other)
  Sender: MYLAN
  Company Number: EU-CHEPLA-2025013112

PATIENT
  Age: 84 Year
  Sex: Female

DRUGS (28)
  1. ATORVASTATIN [Suspect]
     Active Substance: ATORVASTATIN
     Indication: Product used for unknown indication
     Dosage: 1 DOSAGE FORM, QD, 20 MG, 1 TABLET IN THE EVENING
  2. ATORVASTATIN [Suspect]
     Active Substance: ATORVASTATIN
     Dosage: 1 DOSAGE FORM, QD, 20 MG, 1 TABLET IN THE EVENING
     Route: 065
  3. ATORVASTATIN [Suspect]
     Active Substance: ATORVASTATIN
     Dosage: 1 DOSAGE FORM, QD, 20 MG, 1 TABLET IN THE EVENING
     Route: 065
  4. ATORVASTATIN [Suspect]
     Active Substance: ATORVASTATIN
     Dosage: 1 DOSAGE FORM, QD, 20 MG, 1 TABLET IN THE EVENING
  5. MOXONIDINE [Suspect]
     Active Substance: MOXONIDINE
     Indication: Product used for unknown indication
     Dosage: 2 DOSAGE FORM, QD, 0.2 MG IN THE EVENING, 2 TABLETS
  6. MOXONIDINE [Suspect]
     Active Substance: MOXONIDINE
     Dosage: 2 DOSAGE FORM, QD, 0.2 MG IN THE EVENING, 2 TABLETS
     Route: 065
  7. MOXONIDINE [Suspect]
     Active Substance: MOXONIDINE
     Dosage: 2 DOSAGE FORM, QD, 0.2 MG IN THE EVENING, 2 TABLETS
     Route: 065
  8. MOXONIDINE [Suspect]
     Active Substance: MOXONIDINE
     Dosage: 2 DOSAGE FORM, QD, 0.2 MG IN THE EVENING, 2 TABLETS
  9. LERCANIDIPINE [Suspect]
     Active Substance: LERCANIDIPINE
     Indication: Product used for unknown indication
     Dosage: 10 MILLIGRAM, MONTHLY, 10 MG AT NIGHT
  10. LERCANIDIPINE [Suspect]
     Active Substance: LERCANIDIPINE
     Dosage: 10 MILLIGRAM, MONTHLY, 10 MG AT NIGHT
     Route: 065
  11. LERCANIDIPINE [Suspect]
     Active Substance: LERCANIDIPINE
     Dosage: 10 MILLIGRAM, MONTHLY, 10 MG AT NIGHT
     Route: 065
  12. LERCANIDIPINE [Suspect]
     Active Substance: LERCANIDIPINE
     Dosage: 10 MILLIGRAM, MONTHLY, 10 MG AT NIGHT
  13. URAPIDIL [Suspect]
     Active Substance: URAPIDIL
     Indication: Hypertension
     Dosage: 1 DOSAGE FORM, QD, 1-0-0 ORAL VIA BALLOON NASOGASTRIC TUBE, CRUSHED
     Dates: start: 2021
  14. URAPIDIL [Suspect]
     Active Substance: URAPIDIL
     Dosage: 1 DOSAGE FORM, QD, 1-0-0 ORAL VIA BALLOON NASOGASTRIC TUBE, CRUSHED
     Dates: start: 2021
  15. URAPIDIL [Suspect]
     Active Substance: URAPIDIL
     Dosage: 1 DOSAGE FORM, QD, 1-0-0 ORAL VIA BALLOON NASOGASTRIC TUBE, CRUSHED
     Route: 048
     Dates: start: 2021
  16. URAPIDIL [Suspect]
     Active Substance: URAPIDIL
     Dosage: 1 DOSAGE FORM, QD, 1-0-0 ORAL VIA BALLOON NASOGASTRIC TUBE, CRUSHED
     Route: 048
     Dates: start: 2021
  17. URAPIDIL [Suspect]
     Active Substance: URAPIDIL
     Dosage: 1 DOSAGE FORM, QD, 0-0-1 (7 P.M.) ORAL VIA BALLOON NASOGASTRIC TUBE, CRUSHED
     Dates: start: 20251104
  18. URAPIDIL [Suspect]
     Active Substance: URAPIDIL
     Dosage: 1 DOSAGE FORM, QD, 0-0-1 (7 P.M.) ORAL VIA BALLOON NASOGASTRIC TUBE, CRUSHED
     Dates: start: 20251104
  19. URAPIDIL [Suspect]
     Active Substance: URAPIDIL
     Dosage: 1 DOSAGE FORM, QD, 0-0-1 (7 P.M.) ORAL VIA BALLOON NASOGASTRIC TUBE, CRUSHED
     Route: 048
     Dates: start: 20251104
  20. URAPIDIL [Suspect]
     Active Substance: URAPIDIL
     Dosage: 1 DOSAGE FORM, QD, 0-0-1 (7 P.M.) ORAL VIA BALLOON NASOGASTRIC TUBE, CRUSHED
     Route: 048
     Dates: start: 20251104
  21. NEBIVOLOL [Suspect]
     Active Substance: NEBIVOLOL
     Indication: Product used for unknown indication
     Dosage: 1 DOSAGE FORM, QD, 5 MG IN THE EVENING, 1 TABLET
  22. NEBIVOLOL [Suspect]
     Active Substance: NEBIVOLOL
     Dosage: 1 DOSAGE FORM, QD, 5 MG IN THE EVENING, 1 TABLET
     Route: 065
  23. NEBIVOLOL [Suspect]
     Active Substance: NEBIVOLOL
     Dosage: 1 DOSAGE FORM, QD, 5 MG IN THE EVENING, 1 TABLET
     Route: 065
  24. NEBIVOLOL [Suspect]
     Active Substance: NEBIVOLOL
     Dosage: 1 DOSAGE FORM, QD, 5 MG IN THE EVENING, 1 TABLET
  25. NEXIUM [Suspect]
     Active Substance: ESOMEPRAZOLE MAGNESIUM
     Indication: Product used for unknown indication
     Dosage: 10 MILLIGRAM, QD, 10 MG PER DAY
  26. NEXIUM [Suspect]
     Active Substance: ESOMEPRAZOLE MAGNESIUM
     Dosage: 10 MILLIGRAM, QD, 10 MG PER DAY
     Route: 065
  27. NEXIUM [Suspect]
     Active Substance: ESOMEPRAZOLE MAGNESIUM
     Dosage: 10 MILLIGRAM, QD, 10 MG PER DAY
     Route: 065
  28. NEXIUM [Suspect]
     Active Substance: ESOMEPRAZOLE MAGNESIUM
     Dosage: 10 MILLIGRAM, QD, 10 MG PER DAY

REACTIONS (8)
  - Cerebrovascular accident [Unknown]
  - Skin odour abnormal [Unknown]
  - Miosis [Unknown]
  - Dry mouth [Unknown]
  - Blood pressure decreased [Unknown]
  - Refusal of treatment by patient [Unknown]
  - Drug ineffective [Unknown]
  - Off label use [Unknown]
